FAERS Safety Report 9385888 (Version 1)
Quarter: 2013Q3

REPORT INFORMATION
  Report Type: Report from Study
  Country: US (occurrence: US)
  Receive Date: 20130705
  Receipt Date: 20130705
  Transmission Date: 20140515
  Serious: Yes (Hospitalization)
  Sender: FDA-Public Use
  Company Number: US-US-EMD SERONO, INC.-7221946

PATIENT
  Age: 64 Year
  Sex: Female

DRUGS (1)
  1. REBIF [Suspect]
     Indication: MULTIPLE SCLEROSIS
     Route: 058
     Dates: start: 20120409

REACTIONS (5)
  - Grand mal convulsion [Recovering/Resolving]
  - Pyrexia [Recovering/Resolving]
  - Anxiety [Unknown]
  - Visual impairment [Unknown]
  - Headache [Unknown]
